FAERS Safety Report 16042654 (Version 1)
Quarter: 2019Q1

REPORT INFORMATION
  Report Type: Spontaneous
  Country: CA (occurrence: CA)
  Receive Date: 20190306
  Receipt Date: 20190306
  Transmission Date: 20190418
  Serious: Yes (Hospitalization)
  Sender: FDA-Public Use
  Company Number: CA-JNJFOC-JAOCAN1999000313

PATIENT
  Age: 0 Day
  Sex: Female
  Weight: 3.4 kg

DRUGS (6)
  1. IMODIUM [Suspect]
     Active Substance: LOPERAMIDE HYDROCHLORIDE
     Route: 064
  2. NETILMICIN [Concomitant]
     Active Substance: NETILMICIN
     Indication: INFLUENZA
     Route: 064
     Dates: start: 19920217
  3. IMODIUM [Suspect]
     Active Substance: LOPERAMIDE HYDROCHLORIDE
     Indication: DIARRHOEA
     Route: 064
     Dates: start: 19920216, end: 19920218
  4. BACITRACIN. [Concomitant]
     Active Substance: BACITRACIN
     Indication: DIARRHOEA
     Route: 064
     Dates: start: 19920214, end: 19920216
  5. NEOMYCIN. [Concomitant]
     Active Substance: NEOMYCIN
     Indication: DIARRHOEA
     Route: 064
     Dates: start: 19920214, end: 19920216
  6. COTRIMOXAZOLE [Concomitant]
     Active Substance: SULFAMETHOXAZOLE\TRIMETHOPRIM
     Indication: INFLUENZA
     Route: 065
     Dates: start: 19920214, end: 19920216

REACTIONS (2)
  - Jaundice neonatal [Unknown]
  - Foetal exposure during pregnancy [Unknown]

NARRATIVE: CASE EVENT DATE: 19921107
